FAERS Safety Report 5894339-0 (Version None)
Quarter: 2008Q3

REPORT INFORMATION
  Report Type: 
  Country: None (occurrence: None)
  Receive Date: 20080922
  Receipt Date: 20080909
  Transmission Date: 20090109
  Serious: Yes (Hospitalization, Other)
  Sender: FDA-Public Use
  Company Number: 230772K07USA

PATIENT
  Age: 45 Year
  Sex: Female

DRUGS (11)
  1. REBIF [Suspect]
     Indication: MULTIPLE SCLEROSIS
     Dosage: SEE IMAGE
     Route: 058
     Dates: start: 20070118, end: 20070101
  2. REBIF [Suspect]
     Indication: MULTIPLE SCLEROSIS
     Dosage: SEE IMAGE
     Route: 058
     Dates: start: 20070101, end: 20080101
  3. REBIF [Suspect]
     Indication: MULTIPLE SCLEROSIS
     Dosage: SEE IMAGE
     Route: 058
     Dates: start: 20080101
  4. TYLENOL (COTYLENOL) [Concomitant]
  5. MOTRIN [Concomitant]
  6. LOPRESSOR [Concomitant]
  7. KLONOPIN [Concomitant]
  8. FIBER (ALL OTHER NON-THERAPEUTIC PRODUCTS) [Concomitant]
  9. MULTI-VITAMIN (ALL OTHER NON-THERAPEUTIC PRODUCTS) [Concomitant]
  10. NASONEX [Concomitant]
  11. BENADRYL [Concomitant]

REACTIONS (5)
  - ANAEMIA [None]
  - DECREASED APPETITE [None]
  - DIVERTICULITIS [None]
  - DIVERTICULUM [None]
  - INFECTION [None]
